FAERS Safety Report 23302222 (Version 1)
Quarter: 2023Q4

REPORT INFORMATION
  Report Type: Spontaneous
  Country: BE (occurrence: BE)
  Receive Date: 20231215
  Receipt Date: 20231215
  Transmission Date: 20240110
  Serious: Yes (Other)
  Sender: FDA-Public Use
  Company Number: BE-ViiV Healthcare Limited-78089

PATIENT

DRUGS (3)
  1. TIVICAY [Suspect]
     Active Substance: DOLUTEGRAVIR SODIUM
     Indication: HIV infection
     Dosage: 50 MG
  2. PROTHIADEN [Suspect]
     Active Substance: DOTHIEPIN HYDROCHLORIDE
     Indication: Antidepressant therapy
     Dosage: 25 MG
  3. ST. JOHN^S WORT [Suspect]
     Active Substance: ST. JOHN^S WORT
     Indication: Antidepressant therapy
     Dosage: UNK

REACTIONS (4)
  - Poisoning [Unknown]
  - COVID-19 [Unknown]
  - Cough [Not Recovered/Not Resolved]
  - Viral load increased [Unknown]
